FAERS Safety Report 4474790-6 (Version None)
Quarter: 2004Q4

REPORT INFORMATION
  Report Type: 
  Country: None (occurrence: None)
  Receive Date: 20041014
  Receipt Date: 20041007
  Transmission Date: 20050328
  Serious: Yes (Disabling)
  Sender: FDA-Public Use
  Company Number: GB-MERCK-0410GBR00084

PATIENT
  Age: 73 Year
  Sex: Female

DRUGS (9)
  1. ASPIRIN [Concomitant]
     Indication: BLOOD PRESSURE INCREASED
     Route: 048
  2. ASPIRIN [Concomitant]
     Indication: MYOCARDIAL ISCHAEMIA
     Route: 048
  3. ATENOLOL [Concomitant]
     Indication: BLOOD PRESSURE INCREASED
     Route: 048
  4. FUROSEMIDE [Concomitant]
     Indication: BLOOD PRESSURE INCREASED
     Route: 048
  5. LEVOTHYROXINE SODIUM [Concomitant]
     Indication: HYPOTHYROIDISM
     Route: 048
  6. COZAAR [Concomitant]
     Indication: BLOOD PRESSURE INCREASED
     Route: 048
  7. COZAAR [Concomitant]
     Indication: MYOCARDIAL ISCHAEMIA
     Route: 048
  8. ZOCOR [Suspect]
     Indication: BLOOD CHOLESTEROL INCREASED
     Route: 048
     Dates: start: 20040803, end: 20040826
  9. ZOCOR [Suspect]
     Indication: MYOCARDIAL ISCHAEMIA
     Route: 048
     Dates: start: 20040803, end: 20040826

REACTIONS (2)
  - DIFFICULTY IN WALKING [None]
  - MYALGIA [None]
